FAERS Safety Report 5031771-1 (Version None)
Quarter: 2006Q2

REPORT INFORMATION
  Report Type: 
  Country: None (occurrence: None)
  Receive Date: 20060619
  Receipt Date: 20051011
  Transmission Date: 20061013
  Serious: Yes (Death)
  Sender: FDA-Public Use
  Company Number: 2006-143794-NL

PATIENT
  Age: 69 Year
  Sex: Female

DRUGS (12)
  1. DANAPAROID SODIUM [Suspect]
     Indication: DISSEMINATED INTRAVASCULAR COAGULATION
     Route: 042
     Dates: start: 20050210, end: 20050224
  2. NAFAMOSTAT MESILATE [Concomitant]
  3. ACLARUBICIN HYDROCHLORIDE [Concomitant]
  4. CYTARABINE [Concomitant]
  5. GRANISETRON  HCL [Concomitant]
  6. GABEXATE MESILATE [Concomitant]
  7. CEFEPIME HYDROCHLORIDE [Concomitant]
  8. AMIKACIN SULFATE [Concomitant]
  9. CARBENIN [Concomitant]
  10. CLINDAMYCIN [Concomitant]
  11. MEROPENEM [Concomitant]
  12. CIPROFLOXACIN HYDROCHLORIDE [Concomitant]

REACTIONS (2)
  - HAEMOGLOBIN DECREASED [None]
  - HAEMORRHAGE [None]
